FAERS Safety Report 5777758-2 (Version None)
Quarter: 2008Q2

REPORT INFORMATION
  Report Type: 
  Country: None (occurrence: None)
  Receive Date: 20080618
  Receipt Date: 20080606
  Transmission Date: 20081010
  Serious: Yes (Other)
  Sender: FDA-Public Use
  Company Number: US-PFIZER INC-2008048841

PATIENT
  Sex: Female
  Weight: 61.2 kg

DRUGS (4)
  1. CHANTIX [Suspect]
     Indication: SMOKING CESSATION THERAPY
  2. ACTONEL [Concomitant]
  3. ASPIRIN [Concomitant]
  4. CITRACAL [Concomitant]

REACTIONS (2)
  - JOINT INSTABILITY [None]
  - JOINT STIFFNESS [None]
